FAERS Safety Report 10565281 (Version 1)
Quarter: 2014Q4

REPORT INFORMATION
  Report Type: Spontaneous
  Country: GB (occurrence: None)
  Receive Date: 20141103
  Receipt Date: 20141103
  Transmission Date: 20150529
  Serious: Yes (Death)
  Sender: FDA-Public Use
  Company Number: GB-JNJFOC-20140714125

PATIENT
  Age: 44 Year
  Sex: Male
  Weight: 85 kg

DRUGS (1)
  1. LISTERINE COOL MINT ANTISEPTIC [Suspect]
     Active Substance: EUCALYPTOL\MENTHOL\METHYL SALICYLATE\THYMOL
     Indication: PRODUCT USED FOR UNKNOWN INDICATION
     Dosage: UNKNOWN

REACTIONS (9)
  - Cardiac arrest [None]
  - Fall [None]
  - Pulmonary oedema [None]
  - Drug screen positive [None]
  - Anaphylactic shock [None]
  - Malaise [None]
  - Increased bronchial secretion [None]
  - Arteriosclerosis coronary artery [None]
  - Endotracheal intubation complication [None]

NARRATIVE: CASE EVENT DATE: 20130127
